FAERS Safety Report 8295916-2 (Version None)
Quarter: 2012Q2

REPORT INFORMATION
  Report Type: 
  Country: None (occurrence: None)
  Receive Date: 20120418
  Receipt Date: 20120413
  Transmission Date: 20120825
  Serious: Yes (Hospitalization, Other)
  Sender: FDA-Public Use
  Company Number: US-BAYER-2011-023355

PATIENT
  Age: 42 Year
  Sex: Female
  Weight: 66 kg

DRUGS (10)
  1. NASACORT [Concomitant]
     Dosage: UNK
     Dates: start: 20020101
  2. ADVAIR DISKUS 100/50 [Concomitant]
     Dosage: UNK
     Dates: start: 20070201
  3. YAZ [Suspect]
     Indication: PREMENSTRUAL SYNDROME
     Dosage: 1 DF, QD
     Route: 048
     Dates: start: 20061201, end: 20070201
  4. IBUPROFEN (ADVIL) [Concomitant]
  5. VALACICLOVIR [Concomitant]
  6. MULTI-VITAMIN [Concomitant]
     Dosage: UNK UNK, QD
     Dates: start: 19970101
  7. ACYCLOVIR [Concomitant]
     Dosage: UNK
     Dates: start: 20051201
  8. ASCORBIC ACID [Concomitant]
     Dosage: UNK
     Dates: start: 19970101
  9. ALBUTEROL [Concomitant]
     Dosage: UNK
     Dates: start: 20070215
  10. CLARITIN [Concomitant]
     Dosage: UNK
     Dates: start: 20020101

REACTIONS (12)
  - DYSPNOEA EXERTIONAL [None]
  - BACK PAIN [None]
  - MYALGIA [None]
  - PERIPHERAL ISCHAEMIA [None]
  - DEEP VEIN THROMBOSIS [None]
  - PULMONARY EMBOLISM [None]
  - OEDEMA PERIPHERAL [None]
  - MUSCLE TIGHTNESS [None]
  - DYSPNOEA [None]
  - SPIDER VEIN [None]
  - INGUINAL HERNIA [None]
  - PAIN IN EXTREMITY [None]
